FAERS Safety Report 7549315-9 (Version None)
Quarter: 2011Q2

REPORT INFORMATION
  Report Type: 
  Country: None (occurrence: None)
  Receive Date: 20110615
  Receipt Date: 20020716
  Transmission Date: 20111010
  Serious: Yes (Death, Hospitalization)
  Sender: FDA-Public Use
  Company Number: PHEH2002US06422

PATIENT
  Sex: Male

DRUGS (1)
  1. EXELON [Suspect]
     Indication: DEMENTIA ALZHEIMER'S TYPE
     Dosage: UNK UKN, UNK
     Dates: start: 20001010, end: 20020214

REACTIONS (5)
  - HYPERTENSION [None]
  - ARTERIOSCLEROSIS [None]
  - CEREBRAL HAEMATOMA [None]
  - DECREASED APPETITE [None]
  - DEHYDRATION [None]
